FAERS Safety Report 7021029-3 (Version None)
Quarter: 2010Q3

REPORT INFORMATION
  Report Type: 
  Country: None (occurrence: None)
  Receive Date: 20100924
  Receipt Date: 20100915
  Transmission Date: 20110219
  Serious: Yes (Other)
  Sender: FDA-Public Use
  Company Number: 2010SP050107

PATIENT
  Age: 43 Year
  Sex: Female

DRUGS (2)
  1. NASONEX [Suspect]
     Indication: RHINITIS PERENNIAL
     Dosage: 1 DF;QD;NAS
     Route: 045
     Dates: end: 20100101
  2. NEXIUM [Concomitant]

REACTIONS (3)
  - CATARACT [None]
  - GASTROOESOPHAGEAL REFLUX DISEASE [None]
  - VISUAL ACUITY REDUCED [None]
